FAERS Safety Report 20845868 (Version 10)
Quarter: 2023Q4

REPORT INFORMATION
  Report Type: Spontaneous
  Country: US (occurrence: US)
  Receive Date: 20220518
  Receipt Date: 20231020
  Transmission Date: 20240110
  Serious: No
  Sender: FDA-Public Use
  Company Number: US-PFIZER INC-202200237131

PATIENT
  Age: 61 Year
  Sex: Female

DRUGS (3)
  1. IBRANCE [Suspect]
     Active Substance: PALBOCICLIB
     Indication: Breast cancer female
     Dosage: 100 MG, 1X/DAY
     Route: 048
     Dates: start: 201903
  2. IBRANCE [Suspect]
     Active Substance: PALBOCICLIB
     Indication: Metastases to lung
     Dosage: 100 MG, CYCLIC (DAILY 21/28 DAY CYCLE)
     Route: 048
     Dates: start: 20220213
  3. IBRANCE [Suspect]
     Active Substance: PALBOCICLIB
     Dosage: 100 MG, CYCLIC, (DAILY 21/28 DAY CYCLE)
     Route: 048
     Dates: start: 20220328

REACTIONS (7)
  - Neoplasm progression [Unknown]
  - Illness [Unknown]
  - Gait disturbance [Unknown]
  - Stress [Unknown]
  - COVID-19 [Unknown]
  - Therapeutic response unexpected [Recovered/Resolved with Sequelae]
  - Confusional state [Unknown]

NARRATIVE: CASE EVENT DATE: 20220520
